FAERS Safety Report 9294950 (Version 1)
Quarter: 2013Q2

REPORT INFORMATION
  Report Type: Spontaneous
  Country: BE (occurrence: BE)
  Receive Date: 20130517
  Receipt Date: 20130517
  Transmission Date: 20140414
  Serious: Yes (Hospitalization, Other)
  Sender: FDA-Public Use
  Company Number: PHHY2013BE048416

PATIENT
  Age: 72 Year
  Sex: Female
  Weight: 85 kg

DRUGS (11)
  1. ZOMETA [Suspect]
     Indication: METASTASES TO BONE
     Dosage: 4 MG, EVERY 3 TO 4 WEEKS
     Route: 042
     Dates: start: 20120306, end: 20120615
  2. FEMARA [Suspect]
     Dosage: UNK
  3. XGEVA [Suspect]
     Indication: METASTASES TO BONE
     Dosage: 120 MG, ONCE EVERY 4 WEEKS
     Route: 058
     Dates: start: 20120615
  4. SIPRALEXA [Concomitant]
     Dosage: UNK UKN, UNK
  5. OMEPRAZOLE [Concomitant]
     Dosage: UNK UKN, UNK
  6. ELTHYRONE [Concomitant]
     Dosage: UNK UKN, UNK
  7. DUROGESIC [Concomitant]
     Dosage: UNK UKN, UNK
  8. XANAX [Concomitant]
  9. MOTILIUM ^ESTEVE^ [Concomitant]
     Dosage: UNK UKN, UNK
  10. D-CURE [Concomitant]
     Dosage: UNK UKN, UNK
  11. ENOXAPARIN [Concomitant]

REACTIONS (5)
  - Blood albumin decreased [Unknown]
  - Paraesthesia [Recovered/Resolved]
  - Hypocalcaemia [Unknown]
  - Hypomagnesaemia [Unknown]
  - Hypokalaemia [Unknown]
